FAERS Safety Report 24250821 (Version 4)
Quarter: 2024Q3

REPORT INFORMATION
  Report Type: Spontaneous
  Country: CO (occurrence: CO)
  Receive Date: 20240826
  Receipt Date: 20240912
  Transmission Date: 20241016
  Serious: Yes (Other)
  Sender: SANDOZ
  Company Number: CO-002147023-NVSC2022CO121161

PATIENT
  Sex: Male
  Weight: 70 kg

DRUGS (15)
  1. ATORVASTATIN [Suspect]
     Active Substance: ATORVASTATIN
     Indication: Blood cholesterol abnormal
     Dosage: UNK, QD
     Route: 048
     Dates: start: 2016
  2. COSENTYX [Suspect]
     Active Substance: SECUKINUMAB
     Indication: Psoriasis
     Dosage: 300 MG, QMO
     Route: 058
  3. COSENTYX [Suspect]
     Active Substance: SECUKINUMAB
     Dosage: 300 MG, QMO
     Route: 058
     Dates: start: 20200901
  4. COSENTYX [Suspect]
     Active Substance: SECUKINUMAB
     Dosage: 300 MG
     Route: 058
     Dates: start: 201908
  5. COSENTYX [Suspect]
     Active Substance: SECUKINUMAB
     Dosage: 300 MG
     Route: 058
  6. EMPAGLIFLOZIN [Suspect]
     Active Substance: EMPAGLIFLOZIN
     Indication: Hypoglycaemia
     Dosage: 25 MG, Q24H
     Route: 048
  7. INSULIN NOS [Suspect]
     Active Substance: INSULIN NOS
     Dosage: DOSAGE: 20 (DOES NOT INDICATE UNIT OF MEASUREMENT), QD
     Route: 065
  8. INSULIN NOS [Suspect]
     Active Substance: INSULIN NOS
     Indication: Type 2 diabetes mellitus
     Dosage: UNK, Q12H
     Route: 058
  9. LOSARTAN [Suspect]
     Active Substance: LOSARTAN\LOSARTAN POTASSIUM
     Indication: Hypertension
     Dosage: 50 MG, Q12H
     Route: 048
     Dates: start: 2012
  10. METFORMIN [Suspect]
     Active Substance: METFORMIN HYDROCHLORIDE
     Indication: Type 2 diabetes mellitus
     Dosage: UNK, Q12H
     Route: 048
  11. ROSUVASTATIN [Suspect]
     Active Substance: ROSUVASTATIN\ROSUVASTATIN CALCIUM
     Indication: Hypercholesterolaemia
     Dosage: 20 MG, Q24H
     Route: 048
     Dates: start: 2022
  12. METFORMIN HYDROCHLORIDE\VILDAGLIPTIN [Suspect]
     Active Substance: METFORMIN HYDROCHLORIDE\VILDAGLIPTIN
     Indication: Type 2 diabetes mellitus
     Dosage: 50/800 MG
     Route: 048
  13. INSULIN GLARGINE [Concomitant]
     Active Substance: INSULIN GLARGINE
     Indication: Type 2 diabetes mellitus
     Dosage: UNK, QD (58 UNITS)
     Route: 058
     Dates: start: 2017
  14. INSULIN GLARGINE [Concomitant]
     Active Substance: INSULIN GLARGINE
     Dosage: DOSAGE: 56 (DOES NOT INDICATE UNIT OF MEASUREMENT)
     Route: 058
  15. INSULIN GLULISINE [Concomitant]
     Active Substance: INSULIN GLULISINE
     Indication: Diabetes mellitus
     Dosage: UNK, QD (12 UNITS ON THE MORNING AND 14 UNITS IN EVENING)
     Route: 058
     Dates: start: 2017

REACTIONS (9)
  - Diverticulum [Recovered/Resolved]
  - Psoriasis [Not Recovered/Not Resolved]
  - Gastritis [Recovered/Resolved]
  - Haemorrhage [Recovered/Resolved]
  - Dyspepsia [Recovered/Resolved]
  - Rash [Unknown]
  - Peripheral swelling [Unknown]
  - Tooth loss [Unknown]
  - Intentional dose omission [Unknown]
